FAERS Safety Report 10282040 (Version 2)
Quarter: 2014Q3

REPORT INFORMATION
  Report Type: Spontaneous
  Country: US (occurrence: US)
  Receive Date: 20140707
  Receipt Date: 20140813
  Transmission Date: 20150326
  Serious: Yes (Hospitalization)
  Sender: FDA-Public Use
  Company Number: US-GLAXOSMITHKLINE-A1079852A

PATIENT
  Age: 44 Year
  Sex: Female

DRUGS (2)
  1. CAPECITABINE [Concomitant]
     Active Substance: CAPECITABINE
  2. TYKERB [Suspect]
     Active Substance: LAPATINIB DITOSYLATE
     Indication: BREAST CANCER
     Dosage: 1250MG PER DAY
     Route: 048
     Dates: start: 20140603

REACTIONS (2)
  - Investigation [Recovered/Resolved]
  - Metastases to central nervous system [Unknown]

NARRATIVE: CASE EVENT DATE: 201406
